FAERS Safety Report 8322072-4 (Version None)
Quarter: 2012Q2

REPORT INFORMATION
  Report Type: 
  Country: None (occurrence: None)
  Receive Date: 20120430
  Receipt Date: 20120420
  Transmission Date: 20120825
  Serious: Yes (Other)
  Sender: FDA-Public Use
  Company Number: US-ROCHE-1061719

PATIENT

DRUGS (4)
  1. ACCUTANE [Suspect]
     Dates: start: 20030307, end: 20030407
  2. AMNESTEEM [Suspect]
     Indication: ACNE
     Dates: start: 20030221, end: 20030307
  3. CLARAVIS [Suspect]
     Indication: ACNE
     Dates: start: 20040106, end: 20040927
  4. ACCUTANE [Suspect]
     Indication: ACNE
     Dates: start: 20020911, end: 20030127

REACTIONS (5)
  - ANXIETY [None]
  - INFLAMMATORY BOWEL DISEASE [None]
  - CROHN'S DISEASE [None]
  - IRRITABLE BOWEL SYNDROME [None]
  - COLITIS ULCERATIVE [None]
